FAERS Safety Report 7266719 (Version 2)
Quarter: 2014Q1

REPORT INFORMATION
  Report Type: Spontaneous
  Country: US (occurrence: None)
  Receive Date: 20100119
  Receipt Date: 20140205
  Transmission Date: 20141002
  Serious: Yes (Other)
  Sender: FDA-Public Use
  Company Number: 2010S1000048

PATIENT
  Sex: Male
  Weight: 107.5 kg

DRUGS (5)
  1. FLEET PHOSPHO-SODA ORAL SALINE LAXATIVE, GINGER-LEMON FLAVOR (ORAL SOLUTION) [Suspect]
     Indication: COLONOSCOPY
     Dosage: ; PO
     Route: 048
  2. ATENOLOL (ATENOLOL) [Concomitant]
  3. LISINOPRIL (LISINOPRIL) [Concomitant]
  4. HYDROCHLOROTHIAZIDE (HYDROCHLOROTHAZIDE) [Concomitant]
  5. TRICOR (FENOFIBRATE) [Concomitant]

REACTIONS (5)
  - Renal failure chronic [None]
  - Ankylosing spondylitis [None]
  - Periarthritis [None]
  - Cough [None]
  - Pain in extremity [None]
